FAERS Safety Report 8459524-2 (Version None)
Quarter: 2012Q2

REPORT INFORMATION
  Report Type: 
  Country: None (occurrence: None)
  Receive Date: 20120622
  Receipt Date: 20120614
  Transmission Date: 20120825
  Serious: Yes (Hospitalization)
  Sender: FDA-Public Use
  Company Number: US-JNJFOC-20120608815

PATIENT
  Sex: Male

DRUGS (15)
  1. REMICADE [Suspect]
     Indication: INFLAMMATORY BOWEL DISEASE
     Route: 042
     Dates: start: 20070324, end: 20071015
  2. ROXICET [Concomitant]
  3. PROBIOTICS [Concomitant]
  4. TACROLIMUS [Concomitant]
  5. SINGULAIR [Concomitant]
  6. IMODIUM [Concomitant]
  7. METOPROLOL TARTRATE [Concomitant]
  8. COMBIVENT [Concomitant]
  9. ZOFRAN [Concomitant]
  10. CLARITIN [Concomitant]
  11. LEXAPRO [Concomitant]
  12. ANTIBIOTICS FOR IBD [Concomitant]
  13. PIMECROLIMUS [Concomitant]
  14. PROAIR HFA [Concomitant]
  15. OMEPRAZOLE [Concomitant]

REACTIONS (1)
  - DEHYDRATION [None]
